FAERS Safety Report 17256681 (Version 1)
Quarter: 2020Q3

REPORT INFORMATION
  Report Type: Report from Study
  Country: GB (occurrence: GB)
  Receive Date: 20200110
  Receipt Date: 20200110
  Transmission Date: 20201105
  Serious: Yes (Disabling)
  Sender: FDA-Public Use
  Company Number: GB-ROCHE-2508634

PATIENT
  Age: 70 Year
  Sex: Female
  Weight: 67.4 kg

DRUGS (3)
  1. RITUXIMAB. [Suspect]
     Active Substance: RITUXIMAB
     Indication: DIFFUSE LARGE B-CELL LYMPHOMA RECURRENT
     Route: 065
     Dates: start: 20191211
  2. BISOPROLOL [Concomitant]
     Active Substance: BISOPROLOL
     Indication: SINUS TACHYCARDIA
     Route: 048
     Dates: start: 20191002
  3. POLATUZUMAB VEDOTIN. [Suspect]
     Active Substance: POLATUZUMAB VEDOTIN
     Indication: DIFFUSE LARGE B-CELL LYMPHOMA RECURRENT
     Route: 042
     Dates: start: 20191212

REACTIONS (5)
  - Chest pain [Unknown]
  - Bone pain [Unknown]
  - Sciatica [Unknown]
  - Blood urine present [Unknown]
  - Protein urine present [Unknown]

NARRATIVE: CASE EVENT DATE: 20191212
